FAERS Safety Report 19764129 (Version 2)
Quarter: 2022Q4

REPORT INFORMATION
  Report Type: Report from Study
  Country: US (occurrence: US)
  Receive Date: 20210831
  Receipt Date: 20221003
  Transmission Date: 20230113
  Serious: No
  Sender: FDA-Public Use
  Company Number: US-SA-SAC20210825000952

PATIENT
  Sex: Female

DRUGS (9)
  1. TERIFLUNOMIDE [Suspect]
     Active Substance: TERIFLUNOMIDE
     Indication: Multiple sclerosis
     Dosage: 14 MG, QD
     Route: 048
     Dates: start: 20170731
  2. GEMTESA [Concomitant]
     Active Substance: VIBEGRON
  3. ELIQUIS [Concomitant]
     Active Substance: APIXABAN
  4. RIOCIGUAT [Concomitant]
     Active Substance: RIOCIGUAT
  5. ALEVE [Concomitant]
     Active Substance: NAPROXEN SODIUM
  6. MIRINOL [Concomitant]
  7. BOTOX [Concomitant]
     Active Substance: ONABOTULINUMTOXINA
  8. TRAMADOL HYDROCHLORIDE [Concomitant]
     Active Substance: TRAMADOL HYDROCHLORIDE
  9. CANNABIDIOL\HERBALS [Concomitant]
     Active Substance: CANNABIDIOL\HERBALS

REACTIONS (1)
  - Cardiac disorder [Recovering/Resolving]
